FAERS Safety Report 19573950 (Version 1)
Quarter: 2021Q3

REPORT INFORMATION
  Report Type: Report from Study
  Country: BR (occurrence: BR)
  Receive Date: 20210718
  Receipt Date: 20210718
  Transmission Date: 20211014
  Serious: Yes (Other)
  Sender: FDA-Public Use
  Company Number: NVSC2021BR154404

PATIENT
  Age: 50 Year
  Sex: Male

DRUGS (2)
  1. RITALINA LA [Suspect]
     Active Substance: METHYLPHENIDATE HYDROCHLORIDE
     Indication: PRODUCT USED FOR UNKNOWN INDICATION
     Dosage: (STARTED MORE THAN 10 YEARS AGO)
     Route: 065
  2. RITALINA [Suspect]
     Active Substance: METHYLPHENIDATE HYDROCHLORIDE
     Indication: PRODUCT USED FOR UNKNOWN INDICATION
     Dosage: (STARTED MORE THAN 10 YEARS AGO)
     Route: 065

REACTIONS (4)
  - Impaired healing [Unknown]
  - Accident [Recovering/Resolving]
  - Illness [Unknown]
  - Open fracture [Unknown]
